FAERS Safety Report 9395109 (Version 1)
Quarter: 2013Q3

REPORT INFORMATION
  Report Type: Report from Study
  Country: US (occurrence: US)
  Receive Date: 20130711
  Receipt Date: 20130711
  Transmission Date: 20140515
  Serious: Yes (Hospitalization)
  Sender: FDA-Public Use
  Company Number: PHEH2013US014375

PATIENT
  Age: 59 Year
  Sex: Female

DRUGS (26)
  1. MYFORTIC [Suspect]
     Dosage: 360 MG, BID
     Route: 048
     Dates: start: 20130424
  2. PREDNISONE [Suspect]
     Dosage: 5 MG, QD
     Route: 048
     Dates: start: 20110422
  3. NEORAL [Suspect]
     Dosage: 25 MG, BID
     Route: 048
  4. VITAMIIN C [Concomitant]
     Dosage: 500 MG, QD
     Route: 048
     Dates: start: 20111207
  5. METHENAMINE HIPPURATE [Concomitant]
     Dosage: 1 G, BID
     Route: 048
     Dates: start: 20120312
  6. NITROFURANTOIN [Concomitant]
     Dosage: 100 MG, 1 CAPSULE EVERY 12 HOURS WITH FOOD FOR 5 DAYS
     Route: 048
     Dates: start: 20130409
  7. AMLODIPINE [Concomitant]
     Dosage: 5 MG, QD
     Route: 048
  8. DOXYCYCLINE MONOHYDRATE [Concomitant]
     Dosage: 100 MG, BID, 10 DAYS
     Route: 048
  9. HYDRALAZINE [Concomitant]
     Dosage: 50 MG, TID
     Route: 048
  10. LEVOTHYROXINE [Concomitant]
     Dosage: 50 UG, QD
     Route: 048
  11. METOPROLOL TARTRATE [Concomitant]
     Dosage: 50 MG, TID
     Route: 048
  12. MORPHINE SULPHATE [Concomitant]
     Dosage: 60 MG / 12 HOURS
     Route: 048
  13. HUMALOG [Concomitant]
     Dosage: 100 UNIT/ML AND 10 UNITS, TID THRICE A DAY
     Route: 058
  14. AMIODARONE [Concomitant]
     Dosage: 200 MG, QD
     Route: 048
  15. ASCORBIC ACID [Concomitant]
     Dosage: 500 MG, QD
     Route: 048
  16. ASPIRIN [Concomitant]
     Dosage: 81 MG, QD
     Route: 048
  17. ATORVASTATIN [Concomitant]
     Dosage: 40 MG, QD AT BEDTIME
     Route: 048
  18. CHOLECALCIFEROL [Concomitant]
     Dosage: 400 IU, QD
     Route: 048
  19. CLONIDINE [Concomitant]
     Dosage: 0.3 MG, TID
     Route: 048
  20. DOCUSATE SODIUM [Concomitant]
     Dosage: 100 MG, BID
     Route: 048
  21. FUROSEMIDE [Concomitant]
     Dosage: 80 MG, BID
     Route: 048
  22. GABAPENTIN [Concomitant]
     Dosage: 600 MG, TID
     Route: 048
  23. LANTADIN [Concomitant]
     Dosage: 100 UNITS/ML ONCE A DAY
     Route: 058
  24. MS CONTIN [Concomitant]
     Dosage: 60 MG/12 HOURS
     Route: 048
  25. PRILOSEC [Concomitant]
     Dosage: 20 MG, QD
     Route: 048
  26. ZANTAC [Concomitant]
     Dosage: 150 MG, QD
     Route: 048

REACTIONS (6)
  - Renal failure chronic [Unknown]
  - Renal failure acute [Recovered/Resolved]
  - Pulmonary amyloidosis [Recovered/Resolved]
  - Atelectasis [Recovered/Resolved]
  - Pneumonia [Recovered/Resolved]
  - Urinary tract infection [Recovered/Resolved]
